FAERS Safety Report 5132169-8 (Version None)
Quarter: 2006Q4

REPORT INFORMATION
  Report Type: 
  Country: None (occurrence: None)
  Receive Date: 20061017
  Receipt Date: 20061003
  Transmission Date: 20070319
  Serious: Yes (Disabling)
  Sender: FDA-Public Use
  Company Number: US200609003417

PATIENT
  Age: 58 Year
  Sex: Female

DRUGS (1)
  1. HUMALOG [Suspect]
     Dosage: PER SLIDING SCALE,
     Dates: start: 20040101

REACTIONS (2)
  - FALL [None]
  - IMPAIRED WORK ABILITY [None]
